FAERS Safety Report 23302441 (Version 2)
Quarter: 2024Q1

REPORT INFORMATION
  Report Type: Spontaneous
  Country: US (occurrence: US)
  Receive Date: 20231215
  Receipt Date: 20240205
  Transmission Date: 20240410
  Serious: Yes (Other)
  Sender: FDA-Public Use
  Company Number: US-PFIZER INC-PV202300201193

PATIENT
  Age: 69 Year
  Sex: Female

DRUGS (3)
  1. SOLU-MEDROL [Suspect]
     Active Substance: METHYLPREDNISOLONE SODIUM SUCCINATE
     Dosage: UNK
  2. DUPIXENT [Suspect]
     Active Substance: DUPILUMAB
     Indication: Dermatitis atopic
     Dosage: EVERY OTHER WEEK
     Dates: start: 202105, end: 202105
  3. INSULIN NOS [Concomitant]
     Active Substance: INSULIN NOS
     Dosage: UNK

REACTIONS (11)
  - Fall [Unknown]
  - Femur fracture [Unknown]
  - Arthritis [Not Recovered/Not Resolved]
  - Decreased appetite [Recovering/Resolving]
  - Blood pressure decreased [Recovering/Resolving]
  - Blood sodium decreased [Recovering/Resolving]
  - Protein total decreased [Recovering/Resolving]
  - Tooth abscess [Unknown]
  - Blood glucose increased [Recovered/Resolved]
  - Back pain [Unknown]
  - Intervertebral disc protrusion [Unknown]

NARRATIVE: CASE EVENT DATE: 20220101
